FAERS Safety Report 5088077-4 (Version None)
Quarter: 2006Q3

REPORT INFORMATION
  Report Type: 
  Country: None (occurrence: None)
  Receive Date: 20060823
  Receipt Date: 20060823
  Transmission Date: 20061208
  Serious: Yes (Hospitalization)
  Sender: FDA-Public Use
  Company Number: None

PATIENT
  Age: 64 Year
  Sex: Male
  Weight: 90.2658 kg

DRUGS (14)
  1. PREDNISONE [Suspect]
     Indication: GOUT
     Dosage: 40MG  DAILY  PO
     Route: 048
     Dates: start: 20060523, end: 20060527
  2. NTG SL [Concomitant]
  3. WARFARIN SODIUM [Concomitant]
  4. TRAZODONE HCL [Concomitant]
  5. INSULIN ASPART [Concomitant]
  6. DIGOXIN [Concomitant]
  7. ASPIRIN [Concomitant]
  8. NPH INSULIN [Concomitant]
  9. OMEPRAZOLE [Concomitant]
  10. ACETAMINOPHEN [Concomitant]
  11. CARVEDILOL [Concomitant]
  12. FUROSEMIDE [Concomitant]
  13. POTASSIUM CHLORIDE [Concomitant]
  14. METOLAZONE [Concomitant]

REACTIONS (10)
  - CARDIAC FAILURE [None]
  - DYSPNOEA [None]
  - EJECTION FRACTION DECREASED [None]
  - HYPERVOLAEMIA [None]
  - MYOCARDIAL ISCHAEMIA [None]
  - NOCTURNAL DYSPNOEA [None]
  - OEDEMA [None]
  - ORTHOPNOEA [None]
  - VENOUS PRESSURE JUGULAR INCREASED [None]
  - WEIGHT INCREASED [None]
